FAERS Safety Report 18716997 (Version 2)
Quarter: 2021Q1

REPORT INFORMATION
  Report Type: Spontaneous
  Country: US (occurrence: US)
  Receive Date: 20210108
  Receipt Date: 20210331
  Transmission Date: 20210419
  Serious: No
  Sender: FDA-Public Use
  Company Number: US-PFIZER INC-2021010413

PATIENT
  Sex: Female

DRUGS (1)
  1. IBUPROFEN/PARACETAMOL [Suspect]
     Active Substance: ACETAMINOPHEN\IBUPROFEN
     Dosage: UNK

REACTIONS (1)
  - Tachycardia [Unknown]
